FAERS Safety Report 7590377-0 (Version None)
Quarter: 2011Q3

REPORT INFORMATION
  Report Type: 
  Country: None (occurrence: None)
  Receive Date: 20110705
  Receipt Date: 20110628
  Transmission Date: 20111222
  Serious: Yes (Other)
  Sender: FDA-Public Use
  Company Number: US-TEVA-288198USA

PATIENT
  Age: 55 Year
  Sex: Male
  Weight: 80.812 kg

DRUGS (7)
  1. ZOLPIDEM TARTRATE [Concomitant]
     Indication: SLEEP DISORDER
  2. SILDENAFIL CITRATE [Suspect]
     Indication: ERECTILE DYSFUNCTION
     Route: 048
     Dates: start: 19980101
  3. VITAMINS NOS [Concomitant]
  4. FUROSEMIDE [Concomitant]
     Indication: FLUID RETENTION
  5. FUROSEMIDE [Concomitant]
     Indication: OEDEMA PERIPHERAL
  6. AMPHETAMINE W/DEXTROAMPHETAMINE [Suspect]
     Indication: ATTENTION DEFICIT/HYPERACTIVITY DISORDER
     Dates: start: 20110101
  7. CLONAZEPAM [Concomitant]
     Indication: SLEEP DISORDER

REACTIONS (4)
  - BLOOD FOLLICLE STIMULATING HORMONE INCREASED [None]
  - BLOOD LUTEINISING HORMONE ABNORMAL [None]
  - BLOOD TESTOSTERONE FREE INCREASED [None]
  - HORMONE LEVEL ABNORMAL [None]
